FAERS Safety Report 5049058-X (Version None)
Quarter: 2006Q3

REPORT INFORMATION
  Report Type: 
  Country: None (occurrence: None)
  Receive Date: 20060712
  Receipt Date: 20060227
  Transmission Date: 20061208
  Serious: No
  Sender: FDA-Public Use
  Company Number: US-GLAXOSMITHKLINE-A0595321A

PATIENT
  Sex: Male

DRUGS (4)
  1. IMITREX [Suspect]
     Indication: MIGRAINE
     Dosage: 100MG THREE TIMES PER WEEK
     Route: 048
     Dates: start: 19950101
  2. LIPITOR [Concomitant]
  3. NIASPAN [Concomitant]
  4. ASPIRIN [Concomitant]

REACTIONS (1)
  - ARTERIOSCLEROSIS CORONARY ARTERY [None]
